APPROVED DRUG PRODUCT: WELLCOVORIN
Active Ingredient: LEUCOVORIN CALCIUM
Strength: EQ 100MG BASE/VIAL
Dosage Form/Route: INJECTABLE;INJECTION
Application: A089834 | Product #001
Applicant: GLAXOSMITHKLINE
Approved: Jan 23, 1989 | RLD: No | RS: No | Type: DISCN